FAERS Safety Report 9793728 (Version 2)
Quarter: 2014Q1

REPORT INFORMATION
  Report Type: Report from Study
  Country: US (occurrence: US)
  Receive Date: 20140102
  Receipt Date: 20140114
  Transmission Date: 20141002
  Serious: Yes (Death, Hospitalization)
  Sender: FDA-Public Use
  Company Number: US-CELGENEUS-163-21880-13125088

PATIENT
  Age: 65 Year
  Sex: Female
  Weight: 55.6 kg

DRUGS (9)
  1. REVLIMID [Suspect]
     Indication: PLASMA CELL MYELOMA
     Dosage: 25 MILLIGRAM
     Route: 048
     Dates: start: 20131205, end: 20131225
  2. DEXAMETHASONE [Suspect]
     Indication: PLASMA CELL MYELOMA
     Route: 048
     Dates: start: 20131205, end: 20131219
  3. CEFTRIAXONE [Concomitant]
     Indication: STREPTOCOCCAL SEPSIS
     Dosage: 1 GRAM
     Route: 041
     Dates: end: 20131202
  4. CEFTRIAXONE [Concomitant]
     Indication: PNEUMONIA STREPTOCOCCAL
  5. FISH OIL [Concomitant]
     Indication: PRODUCT USED FOR UNKNOWN INDICATION
     Route: 048
  6. VITAMIN C [Concomitant]
     Indication: PRODUCT USED FOR UNKNOWN INDICATION
     Route: 065
  7. VITAMIN D [Concomitant]
     Indication: PRODUCT USED FOR UNKNOWN INDICATION
     Route: 065
  8. TRANSFUSIONS [Concomitant]
     Indication: ANAEMIA
     Route: 065
  9. TRANSFUSIONS [Concomitant]
     Indication: ANAEMIA
     Route: 065
     Dates: start: 201312, end: 201312

REACTIONS (5)
  - Cardio-respiratory arrest [Fatal]
  - Metabolic acidosis [Not Recovered/Not Resolved]
  - Pancytopenia [Not Recovered/Not Resolved]
  - Renal failure acute [Not Recovered/Not Resolved]
  - Bacterial sepsis [Not Recovered/Not Resolved]
